FAERS Safety Report 24725113 (Version 1)
Quarter: 2024Q4

REPORT INFORMATION
  Report Type: Spontaneous
  Country: IR (occurrence: IR)
  Receive Date: 20241212
  Receipt Date: 20241212
  Transmission Date: 20250115
  Serious: Yes (Hospitalization)
  Sender: ASTELLAS
  Company Number: IR-ASTELLAS-2024-AER-020563

PATIENT
  Age: 10 Year
  Sex: Male

DRUGS (5)
  1. PROGRAF [Suspect]
     Active Substance: TACROLIMUS
     Indication: Allogenic stem cell transplantation
     Dosage: 0.015 MG/KG/DOSE (BASED ON LEAN BODY WEIGHT) EVERY 12 HOURS AS A 2-HOUR INFUSION, PROGRAF INJECTION,
     Route: 042
     Dates: start: 20230305
  2. PROGRAF [Suspect]
     Active Substance: TACROLIMUS
     Dosage: WAS TOLERATED AT THE SECOND RECHALLENGE
     Route: 048
     Dates: start: 2023
  3. CYCLOSPORINE [Concomitant]
     Active Substance: CYCLOSPORINE
     Indication: Allogenic stem cell transplantation
     Dosage: 6-H
     Route: 042
     Dates: start: 2023
  4. HYDROCORTISONE [Concomitant]
     Active Substance: HYDROCORTISONE
     Indication: Pruritus
     Route: 042
     Dates: start: 2023
  5. CHLORPHENIRAMINE [Concomitant]
     Active Substance: CHLORPHENIRAMINE
     Indication: Pruritus
     Route: 065
     Dates: start: 2023

REACTIONS (3)
  - Disease recurrence [Recovered/Resolved]
  - Urticaria [Recovered/Resolved]
  - Off label use [Unknown]

NARRATIVE: CASE EVENT DATE: 20230101
